FAERS Safety Report 10185714 (Version 2)
Quarter: 2014Q3

REPORT INFORMATION
  Report Type: Spontaneous
  Country: US (occurrence: US)
  Receive Date: 20140521
  Receipt Date: 20140716
  Transmission Date: 20150326
  Serious: Yes (Life-Threatening, Hospitalization, Other)
  Sender: FDA-Public Use
  Company Number: US-BAYER-2014-074347

PATIENT
  Age: 31 Year
  Sex: Female
  Weight: 72.56 kg

DRUGS (2)
  1. MIRENA [Suspect]
     Active Substance: LEVONORGESTREL
     Indication: MENOMETRORRHAGIA
  2. MIRENA [Suspect]
     Active Substance: LEVONORGESTREL
     Indication: CONTRACEPTION
     Dosage: 20 MCG/24HR, CONT
     Route: 015
     Dates: start: 20060522, end: 20110719

REACTIONS (11)
  - Uterine perforation [None]
  - Pain [None]
  - General physical health deterioration [None]
  - Infection [None]
  - Device issue [None]
  - Abdominal pain [None]
  - Anxiety [None]
  - Injury [None]
  - Emotional distress [None]
  - Device misuse [None]
  - Anhedonia [None]

NARRATIVE: CASE EVENT DATE: 200808
